FAERS Safety Report 8392356-2 (Version None)
Quarter: 2012Q2

REPORT INFORMATION
  Report Type: 
  Country: None (occurrence: None)
  Receive Date: 20120529
  Receipt Date: 20120514
  Transmission Date: 20120825
  Serious: Yes (Other)
  Sender: FDA-Public Use
  Company Number: BE-ROCHE-1070488

PATIENT

DRUGS (1)
  1. AVASTIN [Suspect]
     Indication: GLIOMA

REACTIONS (3)
  - ABDOMINAL PAIN [None]
  - SKIN ULCER [None]
  - SKIN STRIAE [None]
